FAERS Safety Report 15361741 (Version 2)
Quarter: 2018Q3

REPORT INFORMATION
  Report Type: Spontaneous
  Country: US (occurrence: US)
  Receive Date: 20180907
  Receipt Date: 20180912
  Transmission Date: 20181010
  Serious: Yes (Hospitalization, Other)
  Sender: FDA-Public Use
  Company Number: US-PFIZER INC-2017153770

PATIENT
  Age: 9 Decade
  Sex: Male

DRUGS (8)
  1. AMITRIPTYLINE [Suspect]
     Active Substance: AMITRIPTYLINE
     Indication: PRURITUS
     Dosage: BE USED TWICE DAILY TO AFFECTED AREAS AS NEEDED
     Route: 061
  2. AMITRIPTYLINE [Suspect]
     Active Substance: AMITRIPTYLINE
     Indication: DERMATITIS ATOPIC
  3. KETAMINE HCL [Suspect]
     Active Substance: KETAMINE HYDROCHLORIDE
     Indication: PRURITUS
     Dosage: TO BE USED TWICE DAILY TO AFFECTED AREAS AS NEEDED
     Route: 061
  4. LIDOCAINE HCL [Suspect]
     Active Substance: LIDOCAINE HYDROCHLORIDE
     Indication: DERMATITIS ATOPIC
  5. MYCOPHENOLATE MOFETIL. [Concomitant]
     Active Substance: MYCOPHENOLATE MOFETIL
     Indication: PRURITUS
     Dosage: 500 MG, 2X/DAY
  6. MYCOPHENOLATE MOFETIL. [Concomitant]
     Active Substance: MYCOPHENOLATE MOFETIL
     Indication: DERMATITIS ATOPIC
  7. KETAMINE HCL [Suspect]
     Active Substance: KETAMINE HYDROCHLORIDE
     Indication: DERMATITIS ATOPIC
  8. LIDOCAINE HCL [Suspect]
     Active Substance: LIDOCAINE HYDROCHLORIDE
     Indication: PRURITUS
     Dosage: BE USED TWICE DAILY TO AFFECTED AREAS AS NEEDED
     Route: 061

REACTIONS (2)
  - Encephalopathy [Recovered/Resolved]
  - Product use issue [Unknown]
